FAERS Safety Report 10531975 (Version 1)
Quarter: 2014Q4

REPORT INFORMATION
  Report Type: Spontaneous
  Country: US (occurrence: US)
  Receive Date: 20141021
  Receipt Date: 20141021
  Transmission Date: 20150529
  Serious: No
  Sender: FDA-Public Use
  Company Number: US-BAUSCH-BL-2014-004070

PATIENT
  Sex: Male

DRUGS (1)
  1. LOTEMAX [Suspect]
     Active Substance: LOTEPREDNOL ETABONATE
     Indication: KERATITIS
     Route: 047
     Dates: start: 201407

REACTIONS (5)
  - Foreign body sensation in eyes [Unknown]
  - Ocular discomfort [Unknown]
  - Incorrect product storage [Unknown]
  - Drug ineffective for unapproved indication [Unknown]
  - Off label use [Unknown]

NARRATIVE: CASE EVENT DATE: 2014
